FAERS Safety Report 7449473-0 (Version None)
Quarter: 2011Q2

REPORT INFORMATION
  Report Type: 
  Country: None (occurrence: None)
  Receive Date: 20110502
  Receipt Date: 20110419
  Transmission Date: 20111010
  Serious: Yes (Hospitalization, Other)
  Sender: FDA-Public Use
  Company Number: US-BAYER-2011-035221

PATIENT
  Age: 57 Year
  Sex: Male
  Weight: 82 kg

DRUGS (15)
  1. LACTULOSE [Concomitant]
  2. AMLODIPINE [Concomitant]
  3. HEPARIN [Suspect]
     Dosage: 2500 IU, CONT
     Route: 042
     Dates: start: 20100621, end: 20100621
  4. CLOPIDOGREL [Suspect]
     Dosage: 600 MG, UNK
     Dates: start: 20100626
  5. ACETAMINOPHEN [Concomitant]
  6. METOPROLOL SUCCINATE [Concomitant]
  7. REOPRO [Suspect]
     Indication: ANTICOAGULANT THERAPY
     Dosage: 2.8 ML, UNK
     Route: 042
     Dates: start: 20100621, end: 20100622
  8. ASPIRIN [Suspect]
     Dosage: 500 MG, CONT
     Route: 042
  9. BIVALIRUDIN [Suspect]
     Indication: PERCUTANEOUS CORONARY INTERVENTION
     Dosage: 12 ML, ONCE (0.7317 MG/KG)
     Route: 042
     Dates: start: 20100621, end: 20100621
  10. HEPARIN [Suspect]
     Dosage: 5000 IU, UNK
     Dates: start: 20100626, end: 20100626
  11. OXAZEPAM [Concomitant]
  12. BIVALIRUDIN [Suspect]
     Indication: ANTICOAGULANT THERAPY
     Dosage: 20 ML / H (1.2195 MG/KG/H)
     Route: 042
     Dates: start: 20100621, end: 20100621
  13. REOPRO [Suspect]
     Indication: PERCUTANEOUS CORONARY INTERVENTION
     Dosage: 10.3 ML, ONCE
     Route: 022
     Dates: start: 20100621, end: 20100621
  14. ATORVASTATIN [Concomitant]
  15. LISINOPRIL [Concomitant]

REACTIONS (1)
  - RETROPERITONEAL HAEMORRHAGE [None]
